FAERS Safety Report 18413805 (Version 3)
Quarter: 2021Q1

REPORT INFORMATION
  Report Type: Spontaneous
  Country: US (occurrence: US)
  Receive Date: 20201022
  Receipt Date: 20210108
  Transmission Date: 20210419
  Serious: No
  Sender: FDA-Public Use
  Company Number: US-B.I. PHARMACEUTICALS,INC./RIDGEFIELD-2020-BI-056246

PATIENT

DRUGS (1)
  1. SPIRIVA [Suspect]
     Active Substance: TIOTROPIUM BROMIDE MONOHYDRATE
     Indication: PNEUMONIA
     Dosage: 2 PUFFS FROM ONE CAPSULE DAILY
     Route: 065
     Dates: start: 20201013

REACTIONS (3)
  - Product quality issue [Unknown]
  - Off label use [Unknown]
  - Overdose [Unknown]
